FAERS Safety Report 8926224 (Version 1)
Quarter: 2012Q4

REPORT INFORMATION
  Report Type: 
  Country: US (occurrence: US)
  Receive Date: 20121126
  Receipt Date: 20121126
  Transmission Date: 20130627
  Serious: No
  Sender: FDA-Public Use
  Company Number: US-009507513-1211USA007499

PATIENT
  Sex: Male

DRUGS (3)
  1. SAPHRIS [Suspect]
     Indication: ANXIETY
     Dosage: 5 mg, qd
     Route: 060
     Dates: start: 201011, end: 201111
  2. LORAZEPAM [Concomitant]
  3. PAXIL [Concomitant]

REACTIONS (4)
  - Extrapyramidal disorder [Recovering/Resolving]
  - Tardive dyskinesia [Recovering/Resolving]
  - Tic [Recovering/Resolving]
  - Underdose [Unknown]
